FAERS Safety Report 8013119-3 (Version None)
Quarter: 2011Q4

REPORT INFORMATION
  Report Type: 
  Country: None (occurrence: None)
  Receive Date: 20111229
  Receipt Date: 20111222
  Transmission Date: 20120403
  Serious: Yes (Hospitalization)
  Sender: FDA-Public Use
  Company Number: IT-JNJFOC-20111210376

PATIENT
  Age: 15 Year
  Sex: Female

DRUGS (2)
  1. REMICADE [Suspect]
     Indication: JUVENILE ARTHRITIS
     Route: 042
     Dates: start: 20110808, end: 20111109
  2. METHOTREXATE [Concomitant]
     Indication: JUVENILE ARTHRITIS
     Route: 042

REACTIONS (6)
  - INFUSION RELATED REACTION [None]
  - BODY TEMPERATURE INCREASED [None]
  - HYPOTONIA [None]
  - CHILLS [None]
  - SOMNOLENCE [None]
  - BLOOD PRESSURE DECREASED [None]
